FAERS Safety Report 22210318 (Version 1)
Quarter: 2023Q2

REPORT INFORMATION
  Report Type: Report from Study
  Country: CO (occurrence: CO)
  Receive Date: 20230414
  Receipt Date: 20230414
  Transmission Date: 20230722
  Serious: Yes (Other)
  Sender: FDA-Public Use
  Company Number: CO-ABBVIE-4328808

PATIENT
  Age: 79 Year
  Sex: Female

DRUGS (1)
  1. VENCLEXTA [Suspect]
     Active Substance: VENETOCLAX
     Indication: Chronic lymphocytic leukaemia
     Dosage: FORM STRENGTH 100 MG
     Route: 048
     Dates: start: 20220809

REACTIONS (5)
  - Ischaemia [Not Recovered/Not Resolved]
  - Hypertriglyceridaemia [Not Recovered/Not Resolved]
  - Hypercholesterolaemia [Not Recovered/Not Resolved]
  - Vascular occlusion [Not Recovered/Not Resolved]
  - Chest pain [Recovering/Resolving]

NARRATIVE: CASE EVENT DATE: 20221201
